FAERS Safety Report 4514909-1 (Version None)
Quarter: 2004Q4

REPORT INFORMATION
  Report Type: 
  Country: None (occurrence: None)
  Receive Date: 20041129
  Receipt Date: 20041129
  Transmission Date: 20050328
  Serious: Yes (Death)
  Sender: FDA-Public Use
  Company Number: None

PATIENT
  Age: 14 Year
  Sex: Female
  Weight: 40.8237 kg

DRUGS (1)
  1. ZONEGRAN [Suspect]
     Indication: CONVULSION
     Dosage: 200 MG  DAILY  ORAL
     Route: 048
     Dates: start: 20040801, end: 20040913

REACTIONS (2)
  - DEATH [None]
  - MEDICATION ERROR [None]
